FAERS Safety Report 4700238-X (Version None)
Quarter: 2005Q2

REPORT INFORMATION
  Report Type: 
  Country: None (occurrence: None)
  Receive Date: 20050627
  Receipt Date: 20050615
  Transmission Date: 20051028
  Serious: Yes (Other)
  Sender: FDA-Public Use
  Company Number: CA-JNJFOC-20050605403

PATIENT
  Age: 13 Year
  Sex: Female

DRUGS (4)
  1. ACETAMINOPHEN [Suspect]
     Route: 049
  2. ACETAMINOPHEN [Suspect]
     Indication: MIGRAINE
     Route: 049
  3. TYLENOL [Suspect]
     Route: 049
  4. TYLENOL [Suspect]
     Indication: DRUG USE FOR UNKNOWN INDICATION
     Route: 049

REACTIONS (1)
  - ANAPHYLACTIC REACTION [None]
